FAERS Safety Report 6625904-0 (Version None)
Quarter: 2010Q1

REPORT INFORMATION
  Report Type: 
  Country: None (occurrence: None)
  Receive Date: 20100310
  Receipt Date: 20100223
  Transmission Date: 20100710
  Serious: Yes (Death, Disabling)
  Sender: FDA-Public Use
  Company Number: US-BAYER-200921567NA

PATIENT
  Sex: Female

DRUGS (1)
  1. MAGNEVIST [Suspect]
     Indication: ANGIOGRAM
     Dates: start: 20070103, end: 20070103

REACTIONS (4)
  - DEFORMITY [None]
  - NEPHROGENIC SYSTEMIC FIBROSIS [None]
  - PAIN [None]
  - PAIN IN EXTREMITY [None]
